FAERS Safety Report 4627246-1 (Version None)
Quarter: 2005Q2

REPORT INFORMATION
  Report Type: 
  Country: None (occurrence: None)
  Receive Date: 20050405
  Receipt Date: 20050308
  Transmission Date: 20051028
  Serious: Yes (Life-Threatening, Hospitalization)
  Sender: FDA-Public Use
  Company Number: US-BRISTOL-MYERS SQUIBB COMPANY-12891024

PATIENT
  Age: 71 Year
  Sex: Female
  Weight: 72 kg

DRUGS (12)
  1. CETUXIMAB [Suspect]
     Indication: OVARIAN CANCER
     Dosage: LD: 400MG/M2 ON 31-JAN-05. 250 MG/M2 STARTED ON 07-FEB-05. CUMULATIVE TOTAL DOSE TO DATE: 1202 MG.
     Route: 042
     Dates: start: 20050228, end: 20050228
  2. CARBOPLATIN [Suspect]
     Indication: OVARIAN CANCER
     Dosage: ADM AUC6 (585MG) ONLY ON 31-JAN-05. DID NOT REC'D ON 28-FEB-05.
     Route: 042
     Dates: start: 20050131, end: 20050131
  3. BENADRYL [Concomitant]
     Indication: PREMEDICATION
  4. REGLAN [Concomitant]
  5. HYDROCHLOROTHIAZIDE [Concomitant]
     Dosage: DOSE: 37.5/25 DAILY
  6. NORVASC [Concomitant]
  7. SEREVENT [Concomitant]
     Dosage: TWO PUFFS TWICE A DAY
  8. ALBUTEROL [Concomitant]
  9. VITAMIN CAP [Concomitant]
  10. POTASSIUM CHLORATE [Concomitant]
  11. MIRALAX [Concomitant]
  12. TYLENOL (CAPLET) [Concomitant]
     Dosage: TABS

REACTIONS (6)
  - BLOOD CREATINE PHOSPHOKINASE INCREASED [None]
  - BLOOD CREATINE PHOSPHOKINASE MB INCREASED [None]
  - HYPERSENSITIVITY [None]
  - MYOCARDIAL INFARCTION [None]
  - TROPONIN INCREASED [None]
  - VASOSPASM [None]
